FAERS Safety Report 6362407-5 (Version None)
Quarter: 2009Q3

REPORT INFORMATION
  Report Type: 
  Country: None (occurrence: None)
  Receive Date: 20090918
  Receipt Date: 20090531
  Transmission Date: 20100115
  Serious: No
  Sender: FDA-Public Use
  Company Number: US-ABBOTT-09P-163-0571995-00

PATIENT
  Sex: Female
  Weight: 79.45 kg

DRUGS (5)
  1. HUMIRA [Suspect]
     Indication: RHEUMATOID ARTHRITIS
     Dates: start: 20040507
  2. HUMIRA [Suspect]
     Dates: start: 20090408
  3. METHOTREXATE [Concomitant]
     Indication: DRUG USE FOR UNKNOWN INDICATION
  4. HEART MEDICATIONS [Concomitant]
     Indication: DRUG USE FOR UNKNOWN INDICATION
  5. VITAMINS [Concomitant]
     Indication: DRUG USE FOR UNKNOWN INDICATION

REACTIONS (8)
  - ARTHRALGIA [None]
  - COUGH [None]
  - INFECTION [None]
  - JOINT SWELLING [None]
  - PAIN [None]
  - PNEUMONIA [None]
  - PURULENT DISCHARGE [None]
  - PYREXIA [None]
